FAERS Safety Report 4890268-X (Version None)
Quarter: 2006Q1

REPORT INFORMATION
  Report Type: 
  Country: None (occurrence: None)
  Receive Date: 20060124
  Receipt Date: 20050502
  Transmission Date: 20060701
  Serious: Yes (Death)
  Sender: FDA-Public Use
  Company Number: US-MERCK-0505USA00375

PATIENT
  Age: 81 Year
  Sex: Female
  Weight: 127 kg

DRUGS (1)
  1. VIOXX [Suspect]
     Indication: ARTHRITIS
     Route: 048
     Dates: start: 20000410, end: 20020419

REACTIONS (3)
  - BRADYCARDIA [None]
  - HELICOBACTER INFECTION [None]
  - MYOCARDIAL INFARCTION [None]
